FAERS Safety Report 7376147-7 (Version None)
Quarter: 2011Q1

REPORT INFORMATION
  Report Type: 
  Country: None (occurrence: None)
  Receive Date: 20110325
  Receipt Date: 20110301
  Transmission Date: 20110831
  Serious: No
  Sender: FDA-Public Use
  Company Number: US-B.I. PHARMACEUTICALS,INC./RIDGEFIELD-2011-BP-05901BP

PATIENT
  Age: 81 Year
  Sex: Female

DRUGS (6)
  1. AMIODARONE HCL [Concomitant]
     Indication: PROPHYLAXIS
     Dates: start: 20100614
  2. POTASSIUM CHLORIDE [Concomitant]
     Indication: DIURETIC THERAPY
     Dates: start: 20100614
  3. FUROSEMIDE [Concomitant]
     Indication: FLUID REPLACEMENT
     Dates: start: 20100614
  4. LISINOPRIL [Concomitant]
     Indication: HYPERTENSION
     Dates: start: 20100614
  5. DILTIAZEM HCL [Concomitant]
     Indication: PROPHYLAXIS
     Dates: start: 20100614
  6. PRADAXA [Suspect]
     Indication: ATRIAL FIBRILLATION
     Route: 048
     Dates: start: 20110214, end: 20110217

REACTIONS (3)
  - INTERNATIONAL NORMALISED RATIO FLUCTUATION [None]
  - ABDOMINAL DISCOMFORT [None]
  - HAEMATOCHEZIA [None]
